FAERS Safety Report 5262554-5 (Version None)
Quarter: 2007Q1

REPORT INFORMATION
  Report Type: 
  Country: None (occurrence: None)
  Receive Date: 20070312
  Receipt Date: 20070227
  Transmission Date: 20070707
  Serious: Yes (Other)
  Sender: FDA-Public Use
  Company Number: PHBS2007IN03599

PATIENT
  Age: 29 Year
  Sex: Female

DRUGS (4)
  1. CLOZAPINE [Suspect]
     Indication: SCHIZOAFFECTIVE DISORDER
     Dosage: 125 MG/DAY
  2. CLOZAPINE [Suspect]
     Dosage: 150 MG/DAY
  3. VALPROATE SODIUM [Concomitant]
     Dosage: 1000 MG/DAY
  4. VALPROATE SODIUM [Concomitant]
     Dosage: 1200 MG/DAY

REACTIONS (4)
  - CATAPLEXY [None]
  - DROP ATTACKS [None]
  - DYSSTASIA [None]
  - ELECTROENCEPHALOGRAM ABNORMAL [None]
